FAERS Safety Report 10911182 (Version 4)
Quarter: 2015Q2

REPORT INFORMATION
  Report Type: Spontaneous
  Country: NO (occurrence: NO)
  Receive Date: 20150312
  Receipt Date: 20150420
  Transmission Date: 20150821
  Serious: Yes (Other)
  Sender: FDA-Public Use
  Company Number: NO-BAXTER-2015BAX012776

PATIENT
  Age: 81 Year
  Sex: Female
  Weight: 68 kg

DRUGS (8)
  1. PHYSIONEAL 40 GLUCOSE 13,6 MG/ML CLEAR-FLEX, PERITONEALDIALYSEV?SKE [Suspect]
     Active Substance: CALCIUM CHLORIDE\DEXTROSE MONOHYDRATE\MAGNESIUM CHLORIDE\SODIUM BICARBONATE\SODIUM CHLORIDE\SODIUM LACTATE
     Indication: PERITONEAL DIALYSIS
     Route: 033
     Dates: start: 20150223
  2. NUTRINEAL PD4 [Suspect]
     Active Substance: AMINO ACIDS\CALCIUM CHLORIDE\MAGNESIUM CHLORIDE\SODIUM CHLORIDE\SODIUM LACTATE
     Indication: PERITONEAL DIALYSIS
     Route: 033
     Dates: start: 20150223
  3. INSULIN [Concomitant]
     Active Substance: INSULIN NOS
     Indication: TYPE 1 DIABETES MELLITUS
     Route: 065
  4. PHYSIONEAL 40 GLUCOSE 13,6 MG/ML CLEAR-FLEX, PERITONEALDIALYSEV?SKE [Suspect]
     Active Substance: CALCIUM CHLORIDE\DEXTROSE MONOHYDRATE\MAGNESIUM CHLORIDE\SODIUM BICARBONATE\SODIUM CHLORIDE\SODIUM LACTATE
     Route: 033
     Dates: start: 20150223
  5. GLUCOSE SOLUTION [Suspect]
     Active Substance: DEXTROSE
     Route: 065
     Dates: start: 20150223
  6. EXTRANEAL [Suspect]
     Active Substance: CALCIUM CHLORIDE\ICODEXTRIN\MAGNESIUM CHLORIDE\SODIUM CHLORIDE\SODIUM LACTATE
     Indication: PERITONEAL DIALYSIS
     Route: 033
     Dates: start: 20150226
  7. GLUCOSE SOLUTION [Suspect]
     Active Substance: DEXTROSE
     Route: 065
     Dates: end: 20150226
  8. GLUCOSE SOLUTION [Suspect]
     Active Substance: DEXTROSE
     Indication: PRODUCT USED FOR UNKNOWN INDICATION
     Route: 065
     Dates: start: 20150226

REACTIONS (2)
  - Device interaction [Recovered/Resolved]
  - Blood glucose false positive [Recovered/Resolved]

NARRATIVE: CASE EVENT DATE: 20150224
